FAERS Safety Report 7200819-8 (Version None)
Quarter: 2010Q4

REPORT INFORMATION
  Report Type: 
  Country: None (occurrence: None)
  Receive Date: 20101228
  Receipt Date: 20101222
  Transmission Date: 20110411
  Serious: Yes (Other)
  Sender: FDA-Public Use
  Company Number: US-PFIZER INC-2010177885

PATIENT
  Sex: Male
  Weight: 74.83 kg

DRUGS (1)
  1. TIKOSYN [Suspect]
     Indication: CARDIAC FAILURE CONGESTIVE
     Dosage: 500 UG, 2X/DAY
     Route: 048
     Dates: start: 20050101

REACTIONS (1)
  - CARDIAC PACEMAKER INSERTION [None]
